FAERS Safety Report 5873984-2 (Version None)
Quarter: 2008Q3

REPORT INFORMATION
  Report Type: 
  Country: None (occurrence: None)
  Receive Date: 20080905
  Receipt Date: 20080905
  Transmission Date: 20090109
  Serious: Yes (Death, Hospitalization)
  Sender: FDA-Public Use
  Company Number: None

PATIENT
  Sex: Female
  Weight: 56.6996 kg

DRUGS (11)
  1. FLOLAN [Suspect]
     Indication: PULMONARY HYPERTENSION
     Dosage: 36 NG/KG/MIN CONT IV IV
     Route: 042
     Dates: start: 20060211, end: 20080828
  2. SORAFENIB [Concomitant]
  3. LASIX [Concomitant]
  4. SPIRONOLACTONE [Concomitant]
  5. REVATIO [Concomitant]
  6. ALEVE [Concomitant]
  7. ATIVAN [Concomitant]
  8. WARFARIN SODIUM [Concomitant]
  9. DIGOXIN [Concomitant]
  10. LEXAPRO [Concomitant]
  11. PHENERGAN HCL [Concomitant]

REACTIONS (4)
  - HYPOTENSION [None]
  - PYREXIA [None]
  - RENAL FAILURE [None]
  - SHOCK [None]
